FAERS Safety Report 8826863 (Version 7)
Quarter: 2013Q2

REPORT INFORMATION
  Report Type: Report from Study
  Country: GB (occurrence: GB)
  Receive Date: 20121005
  Receipt Date: 20130613
  Transmission Date: 20140414
  Serious: Yes (Life-Threatening, Hospitalization, Other)
  Sender: FDA-Public Use
  Company Number: GB-PFIZER INC-2012242375

PATIENT
  Age: 58 Year
  Sex: Female
  Weight: 99.6 kg

DRUGS (65)
  1. DOXORUBICIN [Suspect]
     Indication: NON-HODGKIN^S LYMPHOMA
     Dosage: 100 MG, EVERY 3 WEEKS
     Route: 042
     Dates: start: 20120312
  2. RO5072759 [Suspect]
     Indication: NON-HODGKIN^S LYMPHOMA
     Dosage: 4 MG/ML, EVERY 3 WEEKS
     Route: 042
     Dates: start: 20120312
  3. CYCLOPHOSPHAMIDE [Suspect]
     Indication: NON-HODGKIN^S LYMPHOMA
     Dosage: 1500 MG, EVERY 3 WEEKS
     Route: 042
     Dates: start: 20120312
  4. VINCRISTINE SULFATE [Suspect]
     Indication: NON-HODGKIN^S LYMPHOMA
     Dosage: 2 MG, EVERY 3 WEEKS
     Route: 042
     Dates: start: 20120312
  5. PREDNISOLONE [Suspect]
     Indication: NON-HODGKIN^S LYMPHOMA
     Dosage: 100 MG, EVERY 3 WEEKS
     Route: 048
     Dates: start: 20120312
  6. PREDNISOLONE [Suspect]
     Indication: DYSAESTHESIA PHARYNX
  7. LANSOPRAZOLE [Concomitant]
     Indication: HIATUS HERNIA
     Dosage: UNK
     Dates: start: 200901
  8. QUININE SULFATE [Concomitant]
     Indication: NIGHT SWEATS
     Dosage: UNK
     Dates: start: 200504
  9. HORMONIN [Concomitant]
     Indication: MENOPAUSAL SYMPTOMS
     Dosage: UNK
     Dates: start: 201107
  10. NAPROXEN [Concomitant]
     Indication: OSTEOARTHRITIS
     Dosage: UNK
     Dates: start: 200906
  11. SERTRALINE [Concomitant]
     Indication: DEPRESSION
     Dosage: UNK
     Dates: start: 201006
  12. SERTRALINE [Concomitant]
     Indication: ANXIETY
  13. ALLOPURINOL [Concomitant]
     Indication: NAUSEA
     Dosage: UNK
     Dates: start: 20120309
  14. DOMPERIDONE [Concomitant]
     Indication: NAUSEA
     Dosage: UNK
     Dates: start: 20120312
  15. DOMPERIDONE [Concomitant]
     Indication: VOMITING
  16. PARACETAMOL [Concomitant]
     Indication: ARTHRALGIA
     Dosage: UNK
     Dates: start: 20120312
  17. ONDANSETRON [Concomitant]
     Indication: PROPHYLAXIS OF NAUSEA AND VOMITING
     Dosage: UNK
     Dates: start: 20120312
  18. ONDANSETRON [Concomitant]
     Dosage: UNK
     Dates: start: 20120710, end: 20120712
  19. NYSTATIN [Concomitant]
     Indication: ORAL CANDIDIASIS
     Dosage: UNK
     Dates: start: 20120609, end: 20120921
  20. CYCLIZINE [Concomitant]
     Indication: NAUSEA
     Dosage: UNK
     Dates: start: 20120604
  21. FERROUS SULFATE [Concomitant]
     Indication: ANAEMIA
     Dosage: UNK
     Dates: start: 20120626, end: 20120711
  22. FLUCLOXACILLIN [Concomitant]
     Dosage: UNK
     Dates: start: 20120609, end: 20120825
  23. FLUCLOXACILLIN [Concomitant]
     Dosage: UNK
     Dates: start: 20120701, end: 20120702
  24. UROKINASE [Concomitant]
     Dosage: UNK
     Dates: start: 20120611, end: 20120612
  25. FOLIC ACID [Concomitant]
     Indication: ANAEMIA
     Dosage: UNK
     Dates: start: 20120624, end: 20120704
  26. CHLORHEXIDINE GLUCONATE [Concomitant]
     Indication: MUCOSAL INFLAMMATION
     Dosage: UNK
     Dates: start: 20120625, end: 20120627
  27. CHLORHEXIDINE GLUCONATE [Concomitant]
     Dosage: UNK
     Dates: start: 20120711, end: 20120727
  28. ORAMORPH [Concomitant]
     Indication: PAIN
     Dosage: UNK
     Dates: start: 20120624, end: 20120626
  29. CO-AMOXICLAV [Concomitant]
     Indication: URINARY TRACT INFECTION
     Dosage: UNK
     Dates: start: 20120827, end: 20120831
  30. FILGRASTIM [Concomitant]
     Indication: NEUTROPENIA
     Dosage: UNK
     Dates: start: 20120712, end: 20120712
  31. FILGRASTIM [Concomitant]
     Dosage: UNK
     Dates: start: 20120830, end: 20120903
  32. AMILORIDE [Concomitant]
     Indication: FLUID RETENTION
     Dosage: UNK
     Dates: start: 20120713, end: 20120817
  33. SLOW-K [Concomitant]
     Indication: BLOOD POTASSIUM DECREASED
     Dosage: UNK
     Dates: start: 20120808, end: 20120810
  34. MEROPENEM [Concomitant]
     Indication: INFECTION
     Dosage: UNK
     Dates: start: 20120711, end: 20120810
  35. LORAZEPAM [Concomitant]
     Indication: ANXIETY
     Dosage: UNK
     Dates: start: 20120712, end: 20120713
  36. TAZOCIN [Concomitant]
     Dosage: UNK
     Dates: start: 20120701, end: 20120703
  37. GENTAMICIN [Concomitant]
     Dosage: UNK
     Dates: start: 20120701, end: 20120702
  38. AMBISONE [Concomitant]
     Dosage: UNK
     Dates: start: 20120713, end: 20120713
  39. ACICLOVIR [Concomitant]
     Dosage: UNK
     Dates: start: 20120711, end: 20120727
  40. CHLORPHENAMINE [Concomitant]
     Indication: ERYTHEMA
     Dosage: UNK
     Dates: start: 20120714
  41. HYDROCORTISONE [Concomitant]
     Dosage: UNK
     Dates: start: 20120708
  42. SANDO K [Concomitant]
     Indication: BLOOD POTASSIUM DECREASED
     Dosage: UNK
     Dates: start: 20120714, end: 20120808
  43. CANESTEN [Concomitant]
     Indication: CANDIDA INFECTION
     Dosage: UNK
     Dates: start: 20120708, end: 20120726
  44. CLEXANE [Concomitant]
     Indication: PULMONARY EMBOLISM
     Dosage: UNK
     Dates: start: 20120713, end: 20120902
  45. FUROSEMIDE [Concomitant]
     Indication: OEDEMA
     Dosage: UNK
     Dates: start: 20120624, end: 20120724
  46. FUROSEMIDE [Concomitant]
     Dosage: UNK
     Dates: start: 20120730, end: 20120803
  47. LEVOPROMAZIN [Concomitant]
     Indication: OEDEMA
     Dosage: UNK
     Dates: start: 20120718, end: 20120718
  48. LEVOPROMAZIN [Concomitant]
     Indication: ANXIETY
     Dosage: UNK
     Dates: start: 20120724, end: 20120724
  49. ACTRAPID [Concomitant]
     Indication: BLOOD GLUCOSE INCREASED
     Dosage: UNK
     Dates: start: 20120727, end: 20120727
  50. HALOPERIDOL [Concomitant]
     Indication: NAUSEA
     Dosage: UNK
     Dates: start: 20120904, end: 20120926
  51. WARFARIN SODIUM [Concomitant]
     Indication: PULMONARY EMBOLISM
     Dosage: UNK
     Dates: start: 20120918
  52. DEXAMETHASONE [Concomitant]
     Dosage: UNK
     Dates: start: 20120702, end: 20120702
  53. METARAMINOL [Concomitant]
     Indication: HYPOTENSION
     Dosage: UNK
     Dates: start: 20120731, end: 20120731
  54. SPIRONOLACTONE [Concomitant]
     Dosage: UNK
     Dates: start: 20120730, end: 20120803
  55. CALCIUM GLUCONATE [Concomitant]
     Dosage: UNK
     Dates: start: 20120722, end: 20120722
  56. CO-CODAMOL [Concomitant]
     Dosage: UNK
     Dates: start: 200504
  57. METOCLOPRAMIDE [Concomitant]
     Indication: NAUSEA
     Dosage: UNK
     Dates: start: 20120410, end: 20120927
  58. INSULIN [Concomitant]
     Indication: BLOOD GLUCOSE INCREASED
     Dosage: UNK
     Dates: start: 20120727, end: 20120727
  59. GELOFUSINE [Concomitant]
  60. LAXIDO [Concomitant]
  61. GLUCOSE [Concomitant]
  62. MAGNESIUM [Concomitant]
  63. G-CSF [Concomitant]
  64. PHOSPHATE-SANDOZ [Concomitant]
  65. MIDAZOLAM [Concomitant]

REACTIONS (3)
  - Febrile neutropenia [Recovered/Resolved]
  - Neutropenia [Recovered/Resolved]
  - Infection [Recovered/Resolved]
